FAERS Safety Report 9546510 (Version 1)
Quarter: 2013Q3

REPORT INFORMATION
  Report Type: Spontaneous
  Country: RU (occurrence: RU)
  Receive Date: 20130923
  Receipt Date: 20130923
  Transmission Date: 20140515
  Serious: Yes (Other)
  Sender: FDA-Public Use
  Company Number: PHHY2013RU103892

PATIENT
  Age: 42 Year
  Sex: Male

DRUGS (3)
  1. GLIVEC [Suspect]
     Indication: CHRONIC MYELOID LEUKAEMIA
     Dosage: 400 MG PER DAY
     Dates: start: 2005
  2. GLIVEC [Suspect]
     Dosage: 600 MG, PER DAY
     Dates: start: 2009
  3. GLIVEC [Suspect]
     Dosage: 800 MG, PER DAY
     Dates: start: 2011

REACTIONS (9)
  - Bone disorder [Unknown]
  - Spinal disorder [Unknown]
  - Tuberculosis [Unknown]
  - Metastasis [Unknown]
  - Chloroma [Unknown]
  - Chronic myeloid leukaemia [Unknown]
  - Malignant neoplasm progression [Unknown]
  - Drug resistance [Unknown]
  - Pain [Unknown]
